FAERS Safety Report 4997417-3 (Version None)
Quarter: 2006Q1

REPORT INFORMATION
  Report Type: 
  Country: None (occurrence: None)
  Receive Date: 20060315
  Receipt Date: 20051212
  Transmission Date: 20060701
  Serious: Yes (Other)
  Sender: FDA-Public Use
  Company Number: 428430

PATIENT
  Sex: Female

DRUGS (1)
  1. BONIVA [Suspect]
     Indication: DRUG USE FOR UNKNOWN INDICATION
     Dosage: ORAL
     Route: 048
     Dates: start: 20050815, end: 20051115

REACTIONS (6)
  - BALANCE DISORDER [None]
  - GINGIVAL PAIN [None]
  - LOOSE TOOTH [None]
  - PRURITUS GENERALISED [None]
  - TOOTH DISORDER [None]
  - VISUAL DISTURBANCE [None]
